FAERS Safety Report 17464145 (Version 1)
Quarter: 2020Q1

REPORT INFORMATION
  Report Type: Report from Study
  Country: NL (occurrence: NL)
  Receive Date: 20200226
  Receipt Date: 20200226
  Transmission Date: 20200409
  Serious: Yes (Hospitalization)
  Sender: FDA-Public Use
  Company Number: NVSC2020NL050830

PATIENT
  Age: 58 Year
  Sex: Female

DRUGS (1)
  1. ZOMETA [Suspect]
     Active Substance: ZOLEDRONIC ACID
     Indication: LUNG CANCER METASTATIC
     Dosage: UNK UNK, Q4W (4 MG / 100 ML)
     Route: 042
     Dates: start: 20200122

REACTIONS (1)
  - Tumour inflammation [Not Recovered/Not Resolved]

NARRATIVE: CASE EVENT DATE: 20200219
